FAERS Safety Report 6049944-8 (Version None)
Quarter: 2009Q1

REPORT INFORMATION
  Report Type: 
  Country: None (occurrence: None)
  Receive Date: 20090121
  Receipt Date: 20090105
  Transmission Date: 20090719
  Serious: Yes (Death)
  Sender: FDA-Public Use
  Company Number: A-NJ2007-17436

PATIENT
  Age: 74 Year
  Sex: Female

DRUGS (2)
  1. VENTAVIS [Suspect]
     Indication: PULMONARY HYPERTENSION
     Dosage: RESPIRATORY
     Route: 055
     Dates: start: 20070509
  2. REVATIO [Concomitant]

REACTIONS (5)
  - ALOPECIA [None]
  - CARDIAC FAILURE [None]
  - CONDITION AGGRAVATED [None]
  - FATIGUE [None]
  - RASH [None]
